FAERS Safety Report 8917803 (Version 1)
Quarter: 2012Q4

REPORT INFORMATION
  Report Type: 
  Country: US (occurrence: US)
  Receive Date: 20121120
  Receipt Date: 20121120
  Transmission Date: 20130627
  Serious: No
  Sender: FDA-Public Use
  Company Number: US-ASTRAZENECA-2010SE25444

PATIENT
  Age: 49 Year
  Sex: Male

DRUGS (4)
  1. NEXIUM [Suspect]
     Route: 048
  2. NEXIUM [Suspect]
     Dosage: sometimes take 2 pills
     Route: 048
  3. NEXIUM [Suspect]
     Route: 048
  4. SYMBICORT [Concomitant]

REACTIONS (5)
  - Blood cholesterol increased [Unknown]
  - Irritability [Unknown]
  - Dyspepsia [Unknown]
  - Intentional drug misuse [Unknown]
  - Intentional drug misuse [Unknown]
